FAERS Safety Report 15125561 (Version 1)
Quarter: 2018Q3

REPORT INFORMATION
  Report Type: Spontaneous
  Country: US (occurrence: US)
  Receive Date: 20180710
  Receipt Date: 20180710
  Transmission Date: 20181010
  Serious: No
  Sender: FDA-Public Use
  Company Number: US-SHIRE-US201824186

PATIENT
  Age: 77 Year
  Sex: Female
  Weight: 90.7 kg

DRUGS (6)
  1. HYDROCHLOROTHIAZIDE. [Concomitant]
     Active Substance: HYDROCHLOROTHIAZIDE
     Indication: FLUID RETENTION
  2. ZANTAC [Concomitant]
     Active Substance: RANITIDINE HYDROCHLORIDE
     Indication: DYSPEPSIA
  3. XIIDRA [Suspect]
     Active Substance: LIFITEGRAST
     Indication: DRY EYE
     Dosage: 1 GTT, 2X/DAY:BID
     Route: 047
     Dates: start: 20180604, end: 20180604
  4. CELEBREX [Concomitant]
     Active Substance: CELECOXIB
     Indication: INFLAMMATION
  5. ASPIRIN. [Concomitant]
     Active Substance: ASPIRIN
     Indication: THROMBOSIS
     Dosage: UNK
  6. CARDIZEM [Concomitant]
     Active Substance: DILTIAZEM HYDROCHLORIDE
     Indication: HYPERTENSION

REACTIONS (6)
  - Visual acuity reduced [Not Recovered/Not Resolved]
  - Vision blurred [Recovered/Resolved]
  - Instillation site pain [Recovered/Resolved]
  - Instillation site reaction [Recovered/Resolved]
  - Discomfort [Not Recovered/Not Resolved]
  - Instillation site pain [Unknown]

NARRATIVE: CASE EVENT DATE: 20180604
